FAERS Safety Report 11073747 (Version 2)
Quarter: 2015Q2

REPORT INFORMATION
  Report Type: Spontaneous
  Country: US (occurrence: US)
  Receive Date: 20150428
  Receipt Date: 20150504
  Transmission Date: 20150821
  Serious: Yes (Death, Other)
  Sender: FDA-Public Use
  Company Number: PHHY2015US048283

PATIENT
  Age: 63 Year
  Sex: Female

DRUGS (2)
  1. IMATINIB [Suspect]
     Active Substance: IMATINIB
     Indication: MELANOMA RECURRENT
     Dosage: 400 MG, BID
     Route: 048
  2. NILOTINIB [Suspect]
     Active Substance: NILOTINIB
     Indication: MELANOMA RECURRENT
     Route: 065

REACTIONS (9)
  - Metastases to central nervous system [Unknown]
  - Malignant neoplasm progression [Unknown]
  - Confusional state [Unknown]
  - Drug ineffective [Unknown]
  - Death [Fatal]
  - Asthenia [Unknown]
  - Weight decreased [Unknown]
  - Peripheral swelling [Unknown]
  - Paraesthesia [Unknown]
